FAERS Safety Report 9668731 (Version 1)
Quarter: 2013Q4

REPORT INFORMATION
  Report Type: Spontaneous
  Country: US (occurrence: None)
  Receive Date: 20131104
  Receipt Date: 20131104
  Transmission Date: 20140711
  Serious: Yes (Hospitalization)
  Sender: FDA-Public Use
  Company Number: None

PATIENT
  Age: 69 Year
  Sex: Male
  Weight: 82.1 kg

DRUGS (8)
  1. ASENAPINE [Suspect]
     Indication: MANIA
     Route: 060
     Dates: start: 20130930, end: 20131012
  2. LITHIUM CARBONATE [Suspect]
     Dosage: BY MOUTH 2 CAPSULES IN THE EVENING
     Dates: start: 20130930, end: 20131012
  3. ASPIRIN [Concomitant]
  4. CALCIUM CARBONATE [Concomitant]
  5. CITALOPRAM [Concomitant]
  6. LORAZEPAM [Concomitant]
  7. LOSARTAN [Concomitant]
  8. MIRTAZAPINE [Concomitant]

REACTIONS (2)
  - Bradycardia [None]
  - Cardio-respiratory arrest [None]
